FAERS Safety Report 8063502 (Version 3)
Quarter: 2012Q4

REPORT INFORMATION
  Report Type: 
  Country: FR (occurrence: US)
  Receive Date: 20110801
  Receipt Date: 20121213
  Transmission Date: 20130627
  Serious: Yes (Other)
  Sender: FDA-Public Use
  Company Number: US-ASTRAZENECA-2011SE44299

PATIENT
  Age: 77 Year
  Sex: Female

DRUGS (7)
  1. NEXIUM [Suspect]
     Indication: GASTROOESOPHAGEAL REFLUX DISEASE
     Route: 048
     Dates: end: 20110614
  2. NEXIUM [Interacting]
     Indication: GASTROOESOPHAGEAL REFLUX DISEASE
     Route: 048
  3. PLAVIX [Interacting]
     Indication: ANGIOPLASTY
     Route: 048
     Dates: start: 20110509
  4. OMEPRAZOLE [Suspect]
     Route: 048
  5. CRESTOR [Suspect]
     Route: 048
  6. ZANTAC [Suspect]
     Indication: GASTROOESOPHAGEAL REFLUX DISEASE
     Route: 065
     Dates: start: 201106
  7. COUMADIN [Concomitant]

REACTIONS (14)
  - Drug interaction [Unknown]
  - Vascular occlusion [Unknown]
  - Cerebrovascular accident [Unknown]
  - Gastrooesophageal reflux disease [Unknown]
  - Fatigue [Unknown]
  - Eye pain [Unknown]
  - Pigmentation disorder [Unknown]
  - Dehydration [Unknown]
  - Nausea [Unknown]
  - Vomiting [Unknown]
  - Diarrhoea [Unknown]
  - Arrhythmia [Unknown]
  - Pain [Unknown]
  - Drug ineffective [Unknown]
